FAERS Safety Report 8485937-9 (Version None)
Quarter: 2012Q3

REPORT INFORMATION
  Report Type: 
  Country: None (occurrence: None)
  Receive Date: 20120703
  Receipt Date: 20120626
  Transmission Date: 20120928
  Serious: No
  Sender: FDA-Public Use
  Company Number: US-ASTRAZENECA-2011SE44928

PATIENT
  Age: 60 Year
  Sex: Male

DRUGS (3)
  1. TOPROL-XL [Suspect]
  2. NEXIUM [Suspect]
  3. METOPROLOL TARTRATE [Suspect]
     Route: 048

REACTIONS (3)
  - ADVERSE EVENT [None]
  - BLOOD PRESSURE FLUCTUATION [None]
  - DRUG INEFFECTIVE [None]
